FAERS Safety Report 5981711-3 (Version None)
Quarter: 2008Q4

REPORT INFORMATION
  Report Type: 
  Country: None (occurrence: None)
  Receive Date: 20081202
  Receipt Date: 20081117
  Transmission Date: 20090506
  Serious: Yes (Hospitalization)
  Sender: FDA-Public Use
  Company Number: 2008US003160

PATIENT
  Age: 45 Year
  Sex: Female
  Weight: 97.1 kg

DRUGS (1)
  1. AMEVIVE [Suspect]
     Dosage: 15 MG, WEEKLY,INTRAMUSCULAR
     Route: 030
     Dates: start: 20051130

REACTIONS (1)
  - INFECTION [None]
